FAERS Safety Report 6746956-3 (Version None)
Quarter: 2010Q2

REPORT INFORMATION
  Report Type: 
  Country: None (occurrence: None)
  Receive Date: 20100528
  Receipt Date: 20100127
  Transmission Date: 20101027
  Serious: No
  Sender: FDA-Public Use
  Company Number: US-ASTRAZENECA-2010SE04335

PATIENT
  Sex: Female

DRUGS (3)
  1. PRILOSEC OTC [Suspect]
     Route: 048
  2. PREDNISONE TAB [Concomitant]
  3. LOW BLOOD PRESSURE MEDICATION [Concomitant]

REACTIONS (1)
  - NIGHT SWEATS [None]
